FAERS Safety Report 22099937 (Version 8)
Quarter: 2023Q2

REPORT INFORMATION
  Report Type: Report from Study
  Country: BR (occurrence: BR)
  Receive Date: 20230315
  Receipt Date: 20230606
  Transmission Date: 20230721
  Serious: Yes (Death, Life-Threatening, Hospitalization, Other)
  Sender: FDA-Public Use
  Company Number: BR-BAYER-2023A033459

PATIENT
  Age: 47 Year
  Sex: Female
  Weight: 59.9 kg

DRUGS (15)
  1. LAROTRECTINIB [Suspect]
     Active Substance: LAROTRECTINIB
     Indication: Breast cancer female
     Dosage: 100 MG, BID
     Dates: start: 20220722, end: 20220817
  2. LAROTRECTINIB [Suspect]
     Active Substance: LAROTRECTINIB
     Indication: Metastases to bone
     Dosage: 100 MG, BID
     Dates: start: 20220818, end: 20220914
  3. LAROTRECTINIB [Suspect]
     Active Substance: LAROTRECTINIB
     Indication: Metastases to central nervous system
     Dosage: 100 MG, BID
     Dates: start: 20220915, end: 20221016
  4. LAROTRECTINIB [Suspect]
     Active Substance: LAROTRECTINIB
     Indication: Breast cancer female
     Dosage: 100 MG, BID
     Dates: start: 20221017, end: 20221110
  5. LAROTRECTINIB [Suspect]
     Active Substance: LAROTRECTINIB
     Indication: Breast cancer female
     Dosage: 100 MG, BID
     Dates: start: 20221111, end: 20221207
  6. LAROTRECTINIB [Suspect]
     Active Substance: LAROTRECTINIB
     Indication: Breast cancer female
     Dosage: 100 MG, BID
     Dates: start: 20221208, end: 20230105
  7. LAROTRECTINIB [Suspect]
     Active Substance: LAROTRECTINIB
     Indication: Breast cancer female
     Dosage: 100 MG, BID
     Dates: start: 20230106, end: 20230202
  8. LAROTRECTINIB [Suspect]
     Active Substance: LAROTRECTINIB
     Indication: Breast cancer female
     Dosage: 100 MG, BID
     Dates: start: 20230203, end: 20230302
  9. LAMOTRIGINE [Concomitant]
     Active Substance: LAMOTRIGINE
     Indication: Epilepsy
     Dosage: 175 MG, QD
     Route: 048
     Dates: start: 202108
  10. PREGABALIN [Concomitant]
     Active Substance: PREGABALIN
     Indication: Spinal pain
     Dosage: 75 MG, QD
     Route: 048
     Dates: start: 202112
  11. PREGABALIN [Concomitant]
     Active Substance: PREGABALIN
     Indication: Back pain
  12. TAMARINE [CASSIA FISTULA EXTRACT;MALUS DOMESTICA;SENNA ALEXANDRINA [Concomitant]
     Dosage: 1 DF, QD
     Route: 048
     Dates: start: 20220803, end: 20220803
  13. DPREV [Concomitant]
     Indication: Vitamin supplementation
     Dosage: 5000 IU INTERNATIONAL UNIT(S), QD
     Route: 048
     Dates: start: 20221007, end: 20221126
  14. PENVIR [Concomitant]
     Indication: Herpes zoster
     Dosage: 500 MG, BID
     Route: 048
     Dates: start: 20221028, end: 20221106
  15. LACTULOSE [Concomitant]
     Active Substance: LACTULOSE
     Indication: Constipation
     Dosage: 10 ML, QD
     Route: 048
     Dates: start: 20221031, end: 20221101

REACTIONS (4)
  - Acute kidney injury [Fatal]
  - Acute kidney injury [Not Recovered/Not Resolved]
  - Thrombocytopenia [Recovering/Resolving]
  - Acute kidney injury [Not Recovered/Not Resolved]

NARRATIVE: CASE EVENT DATE: 20230308
